FAERS Safety Report 7467397-X (Version None)
Quarter: 2011Q2

REPORT INFORMATION
  Report Type: 
  Country: None (occurrence: None)
  Receive Date: 20110509
  Receipt Date: 20101220
  Transmission Date: 20111010
  Serious: No
  Sender: FDA-Public Use
  Company Number: US-ALEXION-A201001638

PATIENT
  Sex: Female

DRUGS (18)
  1. BENTYL [Concomitant]
     Dosage: 20 MG, BID
     Route: 048
     Dates: start: 20100408
  2. VALTREX [Concomitant]
     Dosage: 1 G, QD
     Route: 048
     Dates: start: 20101118
  3. PREMARIN [Concomitant]
     Dosage: 1 APP, QOD
     Dates: start: 20101118
  4. SOLIRIS [Suspect]
     Indication: PAROXYSMAL NOCTURNAL HAEMOGLOBINURIA
     Dosage: 900 MG, Q2W
     Route: 042
  5. ESTRING [Concomitant]
     Dosage: UNK
     Dates: start: 20101214
  6. ESTRACE [Concomitant]
     Dosage: 1 MG, QD
     Route: 048
     Dates: start: 20071015
  7. NEURONTIN [Concomitant]
     Dosage: 3 CAPS, TID
  8. KLONOPIN [Concomitant]
     Dosage: 1-2 TABS, PRN
     Dates: start: 20101118
  9. FOLIC ACID [Concomitant]
     Dosage: 1 MG, QD
     Route: 048
     Dates: start: 20101118
  10. DESVENLAFAXINE SUCCINATE [Concomitant]
     Dosage: 100 MG, QD
     Route: 048
     Dates: start: 20100408
  11. CLARITIN                           /00917501/ [Concomitant]
     Dosage: 10 MG, QD
     Route: 048
     Dates: start: 20100408
  12. ATIVAN [Concomitant]
     Dosage: 1 MG, TID
     Route: 048
     Dates: start: 20101118
  13. BACTROBAN [Concomitant]
     Dosage: TID
     Dates: start: 20101118
  14. SYNTHROID [Concomitant]
     Dosage: 75 MG, QD
     Route: 048
     Dates: start: 20081229
  15. VITAMIN E                          /00110501/ [Concomitant]
     Dosage: 800 IU, BID
     Route: 048
     Dates: start: 20101118
  16. VITAMIN B-12 [Concomitant]
     Dosage: AS DIRECTED
     Dates: start: 20101118
  17. FISH OIL [Concomitant]
     Dosage: 1000 MG, QD
     Route: 048
     Dates: start: 20101118
  18. DRISDOL [Concomitant]
     Dosage: 50000 IU, QW
     Dates: start: 20100408

REACTIONS (14)
  - HEADACHE [None]
  - DEHYDRATION [None]
  - CHILLS [None]
  - COUGH [None]
  - PYREXIA [None]
  - MALAISE [None]
  - NASAL CONGESTION [None]
  - NASOPHARYNGITIS [None]
  - VIRAL INFECTION [None]
  - VOMITING [None]
  - MONOCYTE COUNT INCREASED [None]
  - OROPHARYNGEAL PAIN [None]
  - INFECTION [None]
  - DIARRHOEA [None]
